FAERS Safety Report 5736657-2 (Version None)
Quarter: 2008Q2

REPORT INFORMATION
  Report Type: 
  Country: None (occurrence: None)
  Receive Date: 20080508
  Receipt Date: 20080423
  Transmission Date: 20081010
  Serious: Yes (Other)
  Sender: FDA-Public Use
  Company Number: ACO_00460_2008

PATIENT
  Age: 35 Year
  Sex: Male
  Weight: 90 kg

DRUGS (1)
  1. SIRDALUD (SIRDALUD - TIZANIDINE HYDROCHLORIDE) 2 MG (NOT SPECIFIED) [Suspect]
     Indication: PREOPERATIVE CARE
     Dosage: (2 MG BID ORAL)
     Route: 048
     Dates: start: 20080413

REACTIONS (6)
  - CHROMATURIA [None]
  - JOINT SWELLING [None]
  - OEDEMA PERIPHERAL [None]
  - PRURITUS [None]
  - SIMILAR REACTION ON PREVIOUS EXPOSURE TO DRUG [None]
  - URTICARIA [None]
